FAERS Safety Report 7580154-9 (Version None)
Quarter: 2011Q2

REPORT INFORMATION
  Report Type: 
  Country: None (occurrence: None)
  Receive Date: 20110629
  Receipt Date: 20110609
  Transmission Date: 20111010
  Serious: Yes (Hospitalization, Other)
  Sender: FDA-Public Use
  Company Number: US-BAYER-2010-003101

PATIENT
  Age: 44 Year
  Sex: Female
  Weight: 55.329 kg

DRUGS (9)
  1. YAZ [Suspect]
     Indication: ENDOMETRIOSIS
  2. YASMIN [Suspect]
     Indication: ENDOMETRIOSIS
  3. AZITHROMYCIN [Concomitant]
     Dosage: UNK
     Dates: start: 20081101
  4. YAZ [Suspect]
     Indication: PREMENSTRUAL SYNDROME
     Dosage: UNK
     Dates: start: 20081016, end: 20090101
  5. YASMIN [Suspect]
     Indication: PREMENSTRUAL SYNDROME
     Dosage: UNK
     Dates: start: 20081016, end: 20090101
  6. CLARITHROMYCIN [Concomitant]
     Dosage: UNK
     Dates: start: 20081101
  7. ASPIRIN [Concomitant]
  8. LIPITOR [Concomitant]
  9. CODEINE [Concomitant]
     Dosage: UNK
     Dates: start: 20081101

REACTIONS (4)
  - FEAR [None]
  - CEREBROVASCULAR ACCIDENT [None]
  - HYPOAESTHESIA FACIAL [None]
  - MENTAL DISORDER [None]
